FAERS Safety Report 8181028-5 (Version None)
Quarter: 2012Q1

REPORT INFORMATION
  Report Type: 
  Country: None (occurrence: None)
  Receive Date: 20120302
  Receipt Date: 20120224
  Transmission Date: 20120608
  Serious: Yes (Life-Threatening, Hospitalization)
  Sender: FDA-Public Use
  Company Number: FR-PFIZER INC-2012048985

PATIENT
  Age: 53 Year
  Sex: Male

DRUGS (6)
  1. SOLU-MEDROL [Suspect]
     Indication: PREMEDICATION
     Dosage: 40 MG, SINGLE
     Route: 042
     Dates: start: 20111214, end: 20111214
  2. TRAMADOL HCL [Concomitant]
     Dosage: 150 MG, UNK
  3. ERBITUX [Suspect]
     Indication: CHEMOTHERAPY
     Dosage: UNK, SINGLE
     Route: 042
     Dates: start: 20111214, end: 20111214
  4. POLARAMINE [Suspect]
     Indication: PREMEDICATION
     Dosage: 5 MG, SINGLE
     Route: 042
     Dates: start: 20111214, end: 20111214
  5. ONDANSETRON [Suspect]
     Indication: PREMEDICATION
     Dosage: 8 MG, SINGLE
     Route: 042
     Dates: start: 20111214, end: 20111214
  6. ACETAMINOPHEN [Concomitant]
     Dosage: 500 MG, UNK

REACTIONS (5)
  - HYPOTENSION [None]
  - SKIN REACTION [None]
  - FALL [None]
  - EXTRAVASATION [None]
  - BRONCHOSPASM [None]
